FAERS Safety Report 5889152-4 (Version None)
Quarter: 2008Q3

REPORT INFORMATION
  Report Type: 
  Country: None (occurrence: None)
  Receive Date: 20080917
  Receipt Date: 20080902
  Transmission Date: 20090109
  Serious: Yes (Hospitalization)
  Sender: FDA-Public Use
  Company Number: 2008001509

PATIENT
  Age: 63 Year
  Sex: Male

DRUGS (7)
  1. ERLOTINIB (ERLOTINIB)(TABLET)(ERLOTINIB) [Suspect]
     Indication: NON-SMALL CELL LUNG CANCER
     Dosage: (150 MG,QD), ORAL
     Route: 048
     Dates: start: 20080425, end: 20080522
  2. SU-011 OR PLACEBO [Suspect]
     Dosage: (37.5 MG,QD)
  3. NEXIUM [Concomitant]
  4. IBUPROFEN [Concomitant]
  5. NOVALGIN (METAMIZOLE SODIUM) [Concomitant]
  6. ZOMETA [Concomitant]
  7. DURAGESIC-100 [Concomitant]

REACTIONS (3)
  - CARDIAC FAILURE [None]
  - MALIGNANT NEOPLASM PROGRESSION [None]
  - TACHYARRHYTHMIA [None]
